FAERS Safety Report 10224446 (Version 1)
Quarter: 2014Q1

REPORT INFORMATION
  Report Type: Spontaneous
  Country: US (occurrence: None)
  Receive Date: 20140306
  Receipt Date: 20140306
  Transmission Date: 20141002
  Serious: Yes (Hospitalization)
  Sender: FDA-Public Use
  Company Number: 163-21880-13093211

PATIENT
  Age: 55 Year
  Sex: Male

DRUGS (3)
  1. REVLIMID [Suspect]
     Indication: PLASMA CELL MYELOMA
     Dosage: 5 MG, 28 IN 28 D, PO?TEMPORARILY INTERRUPTED
     Route: 048
     Dates: start: 20130501
  2. ACYCLOVIR (ACICLOVIR) [Concomitant]
  3. SULFAMETHOXAZOLE (SULFAMETHOXAZOLE) [Concomitant]

REACTIONS (1)
  - Pneumonia [None]
